FAERS Safety Report 4386482-2 (Version None)
Quarter: 2004Q2

REPORT INFORMATION
  Report Type: 
  Country: None (occurrence: None)
  Receive Date: 20040629
  Receipt Date: 20040603
  Transmission Date: 20050107
  Serious: Yes (Hospitalization)
  Sender: FDA-Public Use
  Company Number: DE-BRISTOL-MYERS SQUIBB COMPANY-12604633

PATIENT
  Age: 67 Year
  Sex: Male
  Weight: 65 kg

DRUGS (9)
  1. CISPLATIN [Suspect]
     Indication: NON-SMALL CELL LUNG CANCER
     Dosage: 1ST DOSE: 01-NOV-2003
     Route: 042
     Dates: start: 20031122, end: 20031122
  2. PACLITAXEL [Suspect]
     Indication: NON-SMALL CELL LUNG CANCER
     Dosage: 1ST DOSE: 31-OCT-2003
     Route: 042
     Dates: start: 20031121, end: 20031121
  3. ONDANSETRON [Concomitant]
     Indication: PREMEDICATION
     Dates: start: 20031121, end: 20031122
  4. DEXAMETHASONE [Concomitant]
     Indication: PREMEDICATION
     Dates: start: 20031121
  5. NIFEDIPINE [Concomitant]
     Indication: HYPERTENSION
  6. LOSARTAN POTASSIUM [Concomitant]
     Indication: HYPERTENSION
  7. DESMOPRESSIN ACETATE [Concomitant]
     Indication: DIABETES INSIPIDUS
  8. FUROSEMIDE [Concomitant]
     Indication: POLYURIA
  9. PANTOPRAZOLE [Concomitant]
     Indication: PROPHYLAXIS

REACTIONS (6)
  - ANAEMIA [None]
  - DEHYDRATION [None]
  - DIARRHOEA [None]
  - LEUKOPENIA [None]
  - NAUSEA [None]
  - VOMITING [None]
